FAERS Safety Report 7383246-2 (Version None)
Quarter: 2011Q1

REPORT INFORMATION
  Report Type: 
  Country: None (occurrence: None)
  Receive Date: 20110330
  Receipt Date: 20110318
  Transmission Date: 20110831
  Serious: Yes (Hospitalization, Other)
  Sender: FDA-Public Use
  Company Number: PHRM2007FR02646

PATIENT
  Sex: Female

DRUGS (10)
  1. ACTOS [Suspect]
     Indication: DIABETES MELLITUS
     Dosage: 30 MG, UNK
     Route: 048
     Dates: start: 20060201, end: 20071001
  2. GLUCOPHAGE [Suspect]
     Dosage: 1000 MG, TID
  3. LIORESAL [Suspect]
     Dosage: UNK, UNK
     Route: 048
  4. AMARYL [Suspect]
     Indication: DIABETES MELLITUS
     Dosage: 6 MG/DAY
     Route: 048
  5. MYOLASTAN [Suspect]
     Dosage: 50 MG, UNK
     Route: 048
  6. GLUCOPHAGE [Suspect]
     Indication: DIABETES MELLITUS
     Dosage: 3 G/DAY
     Route: 048
  7. ACUITEL [Suspect]
     Dosage: 20 MG, UNK
     Route: 048
  8. FLUDEX - SLOW RELEASE [Suspect]
     Dosage: 1.5 MG, UNK
     Route: 048
  9. AMPECYCLAL [Suspect]
     Dosage: 300 MG, UNK
     Route: 048
  10. ZOCOR [Suspect]
     Indication: DYSLIPIDAEMIA
     Dosage: 20 MG, UNK
     Route: 048

REACTIONS (5)
  - PATHOLOGICAL FRACTURE [None]
  - VITAMIN D DEFICIENCY [None]
  - FRACTURE DELAYED UNION [None]
  - HYPERPARATHYROIDISM [None]
  - TIBIA FRACTURE [None]
